FAERS Safety Report 7601979-7 (Version None)
Quarter: 2011Q3

REPORT INFORMATION
  Report Type: 
  Country: None (occurrence: None)
  Receive Date: 20110711
  Receipt Date: 20110704
  Transmission Date: 20111222
  Serious: Yes (Disabling, Other)
  Sender: FDA-Public Use
  Company Number: GB-PFIZER INC-2011128221

PATIENT
  Age: 60 Year
  Sex: Female
  Weight: 75 kg

DRUGS (11)
  1. PANTOPRAZOLE [Concomitant]
     Indication: GASTROOESOPHAGEAL REFLUX DISEASE
     Dosage: 20 MG, DAILY
     Route: 048
     Dates: start: 20011110
  2. SALBUTAMOL [Concomitant]
     Indication: CHRONIC OBSTRUCTIVE PULMONARY DISEASE
     Dosage: 2 DF, AS NEEDED
     Route: 055
     Dates: start: 19990501
  3. QVAR 40 [Concomitant]
     Indication: CHRONIC OBSTRUCTIVE PULMONARY DISEASE
     Dosage: 1 DF, 2X/DAY
     Route: 055
     Dates: start: 19990501
  4. SALBUTAMOL [Concomitant]
     Indication: ASTHMA
  5. LISINOPRIL [Concomitant]
     Indication: HYPERTENSION
     Dosage: 10 MG, DAILY
     Route: 048
     Dates: start: 20040309
  6. SALMETEROL [Concomitant]
     Indication: CHRONIC OBSTRUCTIVE PULMONARY DISEASE
     Dosage: 2 PUFFS, 2X/DAY
     Route: 055
     Dates: start: 20060508
  7. LEVOCETIRIZINE [Concomitant]
     Indication: SEASONAL ALLERGY
     Dosage: 5 MG, DAILY
     Route: 048
     Dates: start: 20050210
  8. AMLODIPINE [Concomitant]
     Indication: HYPERTENSION
     Dosage: 5 MG, 1X/DAY
     Route: 048
     Dates: start: 20051011
  9. VARENICLINE TARTRATE [Suspect]
     Indication: SMOKING CESSATION THERAPY
     Dosage: 1 MG, 2X/DAY
     Route: 048
     Dates: start: 20110214, end: 20110509
  10. SALMETEROL [Concomitant]
     Indication: ASTHMA
  11. QVAR 40 [Concomitant]
     Indication: ASTHMA

REACTIONS (4)
  - PANIC ATTACK [None]
  - SELF INJURIOUS BEHAVIOUR [None]
  - FEMALE ORGASMIC DISORDER [None]
  - PALPITATIONS [None]
